FAERS Safety Report 5716065-0 (Version None)
Quarter: 2008Q2

REPORT INFORMATION
  Report Type: 
  Country: None (occurrence: None)
  Receive Date: 20080424
  Receipt Date: 20080415
  Transmission Date: 20081010
  Serious: Yes (Other)
  Sender: FDA-Public Use
  Company Number: GR-ROCHE-559327

PATIENT
  Age: 16 Year

DRUGS (2)
  1. OSELTAMIVIR [Suspect]
     Indication: INFLUENZA
     Route: 065
     Dates: end: 20080320
  2. PARACETAMOL [Suspect]
     Dosage: DOSAGE REGIMEN REPORTED AS 1 EVERY 6-8 HOURS
     Route: 065
     Dates: start: 20080319, end: 20080320

REACTIONS (1)
  - AGGRESSION [None]
